FAERS Safety Report 7870805 (Version 3)
Quarter: 2014Q2

REPORT INFORMATION
  Report Type: Report from Study
  Country: ES (occurrence: ES)
  Receive Date: 20110325
  Receipt Date: 20140617
  Transmission Date: 20141212
  Serious: Yes (Other)
  Sender: FDA-Public Use
  Company Number: ES-SHIRE-CQT2-2011-00009

PATIENT
  Age: 32 Year
  Sex: Female
  Weight: 50 kg

DRUGS (8)
  1. 422 (ANAGRELIDE) [Suspect]
     Indication: ESSENTIAL THROMBOCYTHAEMIA
     Dosage: 0.5 MG, 3X/DAY:TID
     Route: 048
     Dates: start: 20050705, end: 20050721
  2. 422 (ANAGRELIDE) [Suspect]
     Dosage: UNK MG, OTHER
     Route: 048
     Dates: start: 20000516, end: 20050406
  3. PEGYLATED INTEFERON ALFA 2A [Suspect]
     Indication: ESSENTIAL THROMBOCYTHAEMIA
     Dosage: 1.5 MILLION IU, 3 M IU-4.5 M IU 3 TIMES PER WEEK
     Route: 058
     Dates: start: 20050413, end: 20050704
  4. PEGYLATED INTEFERON ALFA 2A [Suspect]
     Dosage: 1.5 MILLION IU, 3 TIMES WEEKLY
     Route: 058
     Dates: start: 20070108, end: 20070122
  5. PEGYLATED INTEFERON ALFA 2A [Suspect]
     Dosage: 1.5 MILLION IU, EVERY OTHER DAY
     Route: 058
     Dates: start: 20070123, end: 20070208
  6. PEGYLATED INTEFERON ALFA 2A [Suspect]
     Dosage: 1.5 MILLION IU, 5 TIMES PER WEEK
     Route: 058
     Dates: start: 20070209, end: 20070221
  7. PEGYLATED INTEFERON ALFA 2A [Suspect]
     Dosage: 1.5 MILLION IU, 6 TIMES PER WEEK
     Route: 058
     Dates: start: 20070222, end: 20080925
  8. HYDROXYUREA [Suspect]
     Indication: ESSENTIAL THROMBOCYTHAEMIA
     Dosage: MG, ALTERNATING 500MG-1500MG AS DAILY INTAKE
     Route: 048
     Dates: start: 20050808, end: 20070221

REACTIONS (5)
  - Abortion spontaneous [Recovered/Resolved]
  - Exposure during pregnancy [Recovered/Resolved]
  - Drug intolerance [None]
  - Adverse drug reaction [None]
  - Pregnancy [None]
